FAERS Safety Report 8492972-3 (Version None)
Quarter: 2012Q3

REPORT INFORMATION
  Report Type: 
  Country: None (occurrence: None)
  Receive Date: 20120706
  Receipt Date: 20120703
  Transmission Date: 20120928
  Serious: Yes (Other)
  Sender: FDA-Public Use
  Company Number: US-JNJFOC-20120508882

PATIENT
  Sex: Female
  Weight: 66.68 kg

DRUGS (5)
  1. ZYRTEC [Suspect]
     Indication: SEASONAL ALLERGY
     Route: 048
     Dates: start: 20120409
  2. CALCIUM CITRATE [Concomitant]
     Route: 065
  3. ZYRTEC [Suspect]
     Route: 048
  4. ZYRTEC [Suspect]
     Indication: SEASONAL ALLERGY
     Route: 048
     Dates: start: 20120409
  5. MULTI-VITAMINS [Concomitant]
     Route: 065

REACTIONS (3)
  - POLLAKIURIA [None]
  - VISION BLURRED [None]
  - HEADACHE [None]
